FAERS Safety Report 7534642-1 (Version None)
Quarter: 2011Q2

REPORT INFORMATION
  Report Type: 
  Country: None (occurrence: None)
  Receive Date: 20110609
  Receipt Date: 20110307
  Transmission Date: 20111010
  Serious: Yes (Death)
  Sender: FDA-Public Use
  Company Number: PHHY2011DE18485

PATIENT
  Age: 76 Year
  Sex: Male

DRUGS (2)
  1. IMATINIB MESYLATE [Suspect]
     Indication: GASTROINTESTINAL STROMAL TUMOUR
     Dosage: UNK
  2. IMATINIB MESYLATE [Suspect]
     Dosage: UNK

REACTIONS (2)
  - CARDIOMYOPATHY [None]
  - DRUG INTOLERANCE [None]
